FAERS Safety Report 9700231 (Version 1)
Quarter: 2013Q4

REPORT INFORMATION
  Report Type: Spontaneous
  Country: US (occurrence: US)
  Receive Date: 20131121
  Receipt Date: 20131121
  Transmission Date: 20140711
  Serious: Yes (Hospitalization)
  Sender: FDA-Public Use
  Company Number: US-JNJFOC-20131110800

PATIENT
  Age: 43 Year
  Sex: Male

DRUGS (3)
  1. XARELTO [Suspect]
     Indication: CEREBROVASCULAR ACCIDENT PROPHYLAXIS
     Route: 048
     Dates: end: 201311
  2. XARELTO [Suspect]
     Indication: ATRIAL FIBRILLATION
     Route: 048
     Dates: end: 201311
  3. SIMVASTATIN [Concomitant]
     Dosage: DISCONTINUED IN 1 DAY
     Route: 065
     Dates: end: 20131114

REACTIONS (2)
  - Prothrombin level increased [Recovering/Resolving]
  - Liver function test abnormal [Unknown]
